FAERS Safety Report 16262241 (Version 9)
Quarter: 2019Q4

REPORT INFORMATION
  Report Type: Report from Study
  Country: US (occurrence: US)
  Receive Date: 20190501
  Receipt Date: 20191223
  Transmission Date: 20200122
  Serious: Yes (Hospitalization, Other)
  Sender: FDA-Public Use
  Company Number: US-MALLINCKRODT-T201903235

PATIENT
  Sex: Female
  Weight: 74 kg

DRUGS (21)
  1. REPOSITORY CORTICOTROPIN INJECTION [Suspect]
     Active Substance: CORTICOTROPIN
     Dosage: 80 UNITS/1 ML, 2 TIMES PER WEEK (TUESDAY AND FRIDAY)
     Route: 058
     Dates: start: 20170102
  2. REPOSITORY CORTICOTROPIN INJECTION [Suspect]
     Active Substance: CORTICOTROPIN
     Dosage: 40 UNITS/0.5 ML, 2 TIMES PER WEEK
     Route: 058
     Dates: start: 2019
  3. NOVOLOG [Concomitant]
     Active Substance: INSULIN ASPART
     Indication: PRODUCT USED FOR UNKNOWN INDICATION
     Dosage: UNK
     Route: 065
  4. OMEPRAZOLE. [Concomitant]
     Active Substance: OMEPRAZOLE
     Indication: PRODUCT USED FOR UNKNOWN INDICATION
     Dosage: 40 MILLIGRAM
     Route: 065
  5. REPOSITORY CORTICOTROPIN INJECTION [Suspect]
     Active Substance: CORTICOTROPIN
     Indication: PULMONARY SARCOIDOSIS
     Dosage: 40 UNITS/0.5 ML, 2 TIMES PER WEEK
     Route: 058
     Dates: start: 20161227
  6. REPOSITORY CORTICOTROPIN INJECTION [Suspect]
     Active Substance: CORTICOTROPIN
     Dosage: 80 UNITS/1 ML, 2 TIMES PER WEEK (TUESDAY AND FRIDAY)
     Route: 058
     Dates: end: 201909
  7. PENFILL [Concomitant]
     Indication: PRODUCT USED FOR UNKNOWN INDICATION
     Dosage: UNK
     Route: 065
  8. SIMVASTATIN. [Concomitant]
     Active Substance: SIMVASTATIN
     Indication: PRODUCT USED FOR UNKNOWN INDICATION
     Dosage: 20 MILLIGRAM
     Route: 065
  9. TAMIFLU [Concomitant]
     Active Substance: OSELTAMIVIR PHOSPHATE
     Indication: PRODUCT USED FOR UNKNOWN INDICATION
     Dosage: 75 MILLIGRAM
     Route: 065
  10. LEVEMIR [Concomitant]
     Active Substance: INSULIN DETEMIR
     Indication: PRODUCT USED FOR UNKNOWN INDICATION
     Dosage: UNK
     Route: 065
  11. POTASSIUM CHLORIDE. [Concomitant]
     Active Substance: POTASSIUM CHLORIDE
     Indication: PRODUCT USED FOR UNKNOWN INDICATION
     Dosage: 10 MEQ
     Route: 065
  12. REPOSITORY CORTICOTROPIN INJECTION [Suspect]
     Active Substance: CORTICOTROPIN
     Dosage: 80 UNITS/1 ML, 2 TIMES PER WEEK (TUESDAY AND FRIDAY)
     Route: 058
     Dates: start: 201909
  13. AMLODIPINE [Concomitant]
     Active Substance: AMLODIPINE BESYLATE
     Indication: PRODUCT USED FOR UNKNOWN INDICATION
     Dosage: 10 MILLIGRAM
     Route: 065
  14. LEVOFLOXACIN. [Concomitant]
     Active Substance: LEVOFLOXACIN
     Indication: PRODUCT USED FOR UNKNOWN INDICATION
     Dosage: 500 MILLIGRAM
     Route: 065
  15. METHOTREXATE. [Concomitant]
     Active Substance: METHOTREXATE
     Indication: PRODUCT USED FOR UNKNOWN INDICATION
     Dosage: 2.5 MILLIGRAM
     Route: 065
  16. PREDNISONE. [Concomitant]
     Active Substance: PREDNISONE
     Indication: PRODUCT USED FOR UNKNOWN INDICATION
     Dosage: 20 MILLIGRAM
     Route: 065
  17. PULMICORT TURBUHALER [Concomitant]
     Active Substance: BUDESONIDE
     Indication: PRODUCT USED FOR UNKNOWN INDICATION
     Dosage: 180 MICROGRAM (INHALATION)
     Route: 055
  18. FLUTICASONE. [Concomitant]
     Active Substance: FLUTICASONE
     Indication: PRODUCT USED FOR UNKNOWN INDICATION
     Dosage: 50 MICROGRAM
     Route: 065
  19. HYDROCODONE/APAP C III [Concomitant]
     Indication: PRODUCT USED FOR UNKNOWN INDICATION
     Dosage: 7.5-325
     Route: 065
  20. PREDNISONE. [Concomitant]
     Active Substance: PREDNISONE
     Dosage: 10 MILLIGRAM
     Route: 065
  21. REPOSITORY CORTICOTROPIN INJECTION [Suspect]
     Active Substance: CORTICOTROPIN
     Dosage: 80 UNITS / 1 ML, 2 TIMES PER WEEK, TUESDAY AND FRIDAYS
     Route: 058
     Dates: start: 2019

REACTIONS (16)
  - Weight decreased [Recovering/Resolving]
  - Dyspepsia [Not Recovered/Not Resolved]
  - Nausea [Recovering/Resolving]
  - Abdominal discomfort [Not Recovered/Not Resolved]
  - Malaise [Not Recovered/Not Resolved]
  - Productive cough [Recovering/Resolving]
  - Movement disorder [Not Recovered/Not Resolved]
  - Influenza [Recovering/Resolving]
  - Epistaxis [Recovering/Resolving]
  - Haemoptysis [Recovering/Resolving]
  - Dependence on oxygen therapy [Not Recovered/Not Resolved]
  - Vomiting [Recovering/Resolving]
  - Product dose omission [Recovering/Resolving]
  - Mouth haemorrhage [Recovering/Resolving]
  - Pneumonia [Not Recovered/Not Resolved]
  - Blood pressure fluctuation [Not Recovered/Not Resolved]

NARRATIVE: CASE EVENT DATE: 2019
